FAERS Safety Report 21279824 (Version 2)
Quarter: 2022Q3

REPORT INFORMATION
  Report Type: Spontaneous
  Country: ZA (occurrence: ZA)
  Receive Date: 20220901
  Receipt Date: 20220930
  Transmission Date: 20221027
  Serious: No
  Sender: FDA-Public Use
  Company Number: ZA-ALLERGAN-2228246US

PATIENT
  Sex: Female

DRUGS (1)
  1. OZURDEX [Suspect]
     Active Substance: DEXAMETHASONE
     Indication: Iridocyclitis
     Dosage: 0.7 MG, SINGLE
     Route: 031
     Dates: start: 2016, end: 2016

REACTIONS (1)
  - Off label use [Unknown]
